FAERS Safety Report 6537165-1 (Version None)
Quarter: 2010Q1

REPORT INFORMATION
  Report Type: 
  Country: None (occurrence: None)
  Receive Date: 20100110
  Receipt Date: 20091228
  Transmission Date: 20100710
  Serious: Yes (Death)
  Sender: FDA-Public Use
  Company Number: FABR-1001074

PATIENT
  Age: 47 Year
  Sex: Male
  Weight: 90 kg

DRUGS (2)
  1. FABRAZYME [Suspect]
     Indication: FABRY'S DISEASE
     Dosage: 40 MG, Q3W, INTRAVENOUS; 90 MG, Q2W, INTRAVENOUS
     Route: 042
     Dates: end: 20091112
  2. FABRAZYME [Suspect]
     Indication: FABRY'S DISEASE
     Dosage: 40 MG, Q3W, INTRAVENOUS; 90 MG, Q2W, INTRAVENOUS
     Route: 042
     Dates: start: 20040101

REACTIONS (3)
  - FALL [None]
  - HEAD INJURY [None]
  - NECK INJURY [None]
